FAERS Safety Report 4978943-X (Version None)
Quarter: 2006Q2

REPORT INFORMATION
  Report Type: 
  Country: None (occurrence: None)
  Receive Date: 20060419
  Receipt Date: 20060419
  Transmission Date: 20061013
  Serious: Yes (Life-Threatening, Other)
  Sender: FDA-Public Use
  Company Number: None

PATIENT
  Sex: Male
  Weight: 66.2252 kg

DRUGS (6)
  1. TEGRETOL [Suspect]
     Indication: AUTISM
     Dosage: 100 MG 4 TAB AM 3 TABS HS
  2. TEGRETOL [Suspect]
     Indication: CEREBRAL PALSY
     Dosage: 100 MG 4 TAB AM 3 TABS HS
  3. TEGRETOL [Suspect]
     Indication: CONVULSION
     Dosage: 100 MG 4 TAB AM 3 TABS HS
  4. TEGRETOL [Suspect]
     Indication: MICROCEPHALY
     Dosage: 100 MG 4 TAB AM 3 TABS HS
  5. PHENOBARBITOL [Concomitant]
  6. ZYPREXA [Concomitant]

REACTIONS (3)
  - DRUG INEFFECTIVE [None]
  - PHARMACEUTICAL PRODUCT COMPLAINT [None]
  - THERAPEUTIC RESPONSE UNEXPECTED WITH DRUG SUBSTITUTION [None]
